FAERS Safety Report 7733950-9 (Version None)
Quarter: 2011Q3

REPORT INFORMATION
  Report Type: 
  Country: None (occurrence: None)
  Receive Date: 20110907
  Receipt Date: 20110825
  Transmission Date: 20111222
  Serious: Yes (Death)
  Sender: FDA-Public Use
  Company Number: JP-CELGENEUS-087-50794-11072366

PATIENT
  Age: 76 Year
  Sex: Male
  Weight: 52 kg

DRUGS (38)
  1. SPIRIVA [Concomitant]
     Dosage: 18 MICROGRAM
     Route: 048
     Dates: start: 20110323
  2. PURSENNID [Concomitant]
     Dosage: 12 MILLIGRAM
     Route: 048
     Dates: start: 20110323
  3. CATALIN [Concomitant]
     Route: 061
     Dates: start: 20110407
  4. AUZEI [Concomitant]
     Dosage: 100 MILLIGRAM
     Route: 041
     Dates: start: 20110712, end: 20110712
  5. VIDAZA [Suspect]
     Dosage: 75 MILLIGRAM/SQ. METER
     Route: 058
     Dates: start: 20110711, end: 20110713
  6. ADONA [Concomitant]
     Dosage: 90 MILLIGRAM
     Route: 048
     Dates: start: 20110609, end: 20110713
  7. TAMSULOSIN HCL [Concomitant]
     Dosage: .2 MILLIGRAM
     Route: 048
     Dates: start: 20110323
  8. VIDAZA [Suspect]
     Dosage: 75 MILLIGRAM/SQ. METER
     Route: 058
     Dates: start: 20110510, end: 20110513
  9. SULFAMETHOXAZOLE [Concomitant]
     Dosage: 1 DF
     Route: 048
     Dates: start: 20110609, end: 20110713
  10. ALLOPURINOL [Concomitant]
     Dosage: 100 MILLIGRAM
     Route: 048
     Dates: start: 20110323
  11. AMLODIPINE [Concomitant]
     Dosage: 5 MILLIGRAM
     Route: 048
     Dates: start: 20110609, end: 20110713
  12. TAMSULOSIN HCL [Concomitant]
     Dosage: .2 MILLIGRAM
     Route: 048
     Dates: start: 20110609, end: 20110713
  13. ZOLPIDEM [Concomitant]
     Dosage: 5 MILLIGRAM
     Route: 048
     Dates: start: 20110609, end: 20110713
  14. VIDAZA [Suspect]
     Dosage: 75 MILLIGRAM/SQ. METER
     Route: 058
     Dates: start: 20110609, end: 20110610
  15. DESFERAL [Concomitant]
     Dosage: 500 MILLIGRAM
     Route: 041
     Dates: start: 20110709, end: 20110713
  16. AMLODIPINE [Concomitant]
     Dosage: .2 MILLIGRAM
     Route: 048
     Dates: start: 20110323
  17. SEREVENT [Concomitant]
     Route: 048
     Dates: start: 20110407
  18. SULFAMETHOXAZOLE [Concomitant]
     Dosage: 1 DF
     Route: 048
     Dates: start: 20110323
  19. MAGNESIUM SULFATE [Concomitant]
     Dosage: 660 MILLIGRAM
     Route: 048
     Dates: start: 20110323
  20. PREDNISOLONE [Concomitant]
     Dosage: 10 MILLIGRAM
     Route: 048
     Dates: start: 20110609, end: 20110713
  21. SPIRIVA [Concomitant]
     Dosage: 18 MICROGRAM
     Route: 048
     Dates: start: 20110609, end: 20110713
  22. ZOLPIDEM [Concomitant]
     Dosage: 5 MILLIGRAM
     Route: 048
     Dates: start: 20110407
  23. VIDAZA [Suspect]
     Dosage: 75 MILLIGRAM/SQ. METER
     Route: 058
     Dates: start: 20110328, end: 20110331
  24. VIDAZA [Suspect]
     Dosage: 75 MILLIGRAM/SQ. METER
     Route: 058
     Dates: start: 20110516, end: 20110518
  25. ADONA [Concomitant]
     Dosage: 90 MILLIGRAM
     Route: 048
     Dates: start: 20110323
  26. CATALIN [Concomitant]
     Route: 061
     Dates: start: 20110609, end: 20110713
  27. VIDAZA [Suspect]
     Dosage: 75 MILLIGRAM/SQ. METER
     Route: 058
     Dates: start: 20110323, end: 20110325
  28. VIDAZA [Suspect]
     Dosage: 75 MILLIGRAM/SQ. METER
     Route: 058
     Dates: start: 20110613, end: 20110617
  29. DESFERAL [Concomitant]
     Dosage: 500 MILLIGRAM
     Route: 041
     Dates: start: 20110427, end: 20110531
  30. LENDORMIN [Concomitant]
     Dosage: .25 MILLIGRAM
     Route: 048
     Dates: start: 20110323
  31. ALLOPURINOL [Concomitant]
     Dosage: 100 MILLIGRAM
     Route: 048
     Dates: start: 20110609, end: 20110713
  32. PREDNISOLONE [Concomitant]
     Dosage: 10 MILLIGRAM
     Route: 048
     Dates: start: 20110323
  33. PURSENNID [Concomitant]
     Dosage: 12 MILLIGRAM
     Route: 048
     Dates: start: 20110609, end: 20110713
  34. SEREVENT [Concomitant]
     Route: 048
     Dates: start: 20110609, end: 20110713
  35. DESFERAL [Concomitant]
     Dosage: 1000 MILLIGRAM
     Route: 041
     Dates: start: 20110622, end: 20110703
  36. POSTERISAN [Concomitant]
     Route: 061
     Dates: start: 20110323
  37. EXJADE [Concomitant]
     Dosage: 1000 MILLIGRAM
     Route: 048
     Dates: start: 20110603, end: 20110621
  38. HYALEIN [Concomitant]
     Route: 061
     Dates: start: 20110620, end: 20110713

REACTIONS (1)
  - GASTROINTESTINAL HAEMORRHAGE [None]
